FAERS Safety Report 7141460-5 (Version None)
Quarter: 2010Q4

REPORT INFORMATION
  Report Type: 
  Country: None (occurrence: None)
  Receive Date: 20101119
  Receipt Date: 20100407
  Transmission Date: 20110411
  Serious: Yes (Hospitalization)
  Sender: FDA-Public Use
  Company Number: 2010022928

PATIENT

DRUGS (1)
  1. CARIMUNE [Suspect]
     Indication: IMMUNODEFICIENCY COMMON VARIABLE
     Dosage: (35 G 1X/MONTH INTRAVENOUS)
     Route: 042

REACTIONS (1)
  - PYREXIA [None]
